FAERS Safety Report 11823919 (Version 2)
Quarter: 2016Q1

REPORT INFORMATION
  Report Type: Spontaneous
  Country: IT (occurrence: IT)
  Receive Date: 20151210
  Receipt Date: 20160120
  Transmission Date: 20160525
  Serious: Yes (Hospitalization, Other)
  Sender: FDA-Public Use
  Company Number: PHHY2015IT159529

PATIENT
  Sex: Female
  Weight: 78 kg

DRUGS (2)
  1. DELTACORTENE [Concomitant]
     Active Substance: PREDNISONE
     Indication: PRODUCT USED FOR UNKNOWN INDICATION
     Dosage: 25 MG, UNK
     Route: 065
     Dates: start: 20151130, end: 20151130
  2. OXALIPLATIN SANDOZ [Suspect]
     Active Substance: OXALIPLATIN
     Indication: COLON CANCER STAGE III
     Dosage: 220 MG, QMO
     Route: 042
     Dates: start: 20151110, end: 20151201

REACTIONS (6)
  - Tremor [Not Recovered/Not Resolved]
  - Gait disturbance [Not Recovered/Not Resolved]
  - Transient ischaemic attack [Unknown]
  - Dyslalia [Not Recovered/Not Resolved]
  - Laryngospasm [Not Recovered/Not Resolved]
  - Asthenia [Not Recovered/Not Resolved]
